FAERS Safety Report 17150949 (Version 1)
Quarter: 2019Q4

REPORT INFORMATION
  Report Type: Spontaneous
  Country: US (occurrence: US)
  Receive Date: 20191212
  Receipt Date: 20191212
  Transmission Date: 20200122
  Serious: No
  Sender: FDA-Public Use
  Company Number: None

PATIENT
  Sex: Female

DRUGS (2)
  1. METRONIDAZOL [Suspect]
     Active Substance: METRONIDAZOLE
  2. ROSADAN [Suspect]
     Active Substance: METRONIDAZOLE

REACTIONS (2)
  - Skin irritation [None]
  - Erythema [None]
